FAERS Safety Report 22387643 (Version 1)
Quarter: 2023Q2

REPORT INFORMATION
  Report Type: Spontaneous
  Country: US (occurrence: US)
  Receive Date: 20230531
  Receipt Date: 20230531
  Transmission Date: 20230721
  Serious: Yes (Hospitalization)
  Sender: FDA-Public Use
  Company Number: US-MYLANLABS-2023M1054335

PATIENT
  Age: 29 Year
  Sex: Female

DRUGS (2)
  1. TRAZODONE [Suspect]
     Active Substance: TRAZODONE HYDROCHLORIDE
     Indication: Schizophrenia
     Dosage: 300 DOSAGE FORM, SHE INGESTED 300 TABLETS OF TRAZODONE
     Route: 048
  2. ASPIRIN [Suspect]
     Active Substance: ASPIRIN
     Indication: Schizophrenia
     Dosage: 500 DOSAGE FORM (SHE INGESTED 500 TABLETS OF ASPIRIN)
     Route: 048

REACTIONS (2)
  - Intentional product misuse [Unknown]
  - Overdose [Unknown]
